FAERS Safety Report 16999176 (Version 1)
Quarter: 2019Q4

REPORT INFORMATION
  Report Type: Spontaneous
  Country: HR (occurrence: HR)
  Receive Date: 20191106
  Receipt Date: 20191106
  Transmission Date: 20200122
  Serious: Yes (Other)
  Sender: FDA-Public Use
  Company Number: HR-BAYER-2019-198892

PATIENT
  Sex: Female

DRUGS (1)
  1. BETAFERON COMBIPACK [Suspect]
     Active Substance: INTERFERON BETA-1B
     Indication: MULTIPLE SCLEROSIS
     Dosage: UNK

REACTIONS (5)
  - Rhinorrhoea [None]
  - Pyrexia [None]
  - Asthenia [None]
  - Arthralgia [None]
  - Respiratory tract infection [None]

NARRATIVE: CASE EVENT DATE: 201911
